FAERS Safety Report 25954478 (Version 2)
Quarter: 2025Q4

REPORT INFORMATION
  Report Type: Report from Study
  Country: US (occurrence: US)
  Receive Date: 20251024
  Receipt Date: 20251211
  Transmission Date: 20260119
  Serious: Yes (Other)
  Sender: ALEXION PHARMACEUTICALS
  Company Number: US-AstraZeneca-CH-00976198A

PATIENT
  Sex: Male

DRUGS (4)
  1. OSIMERTINIB [Suspect]
     Active Substance: OSIMERTINIB
     Route: 065
  2. ASPIRIN [Concomitant]
     Active Substance: ASPIRIN
  3. TAGRISSO [Concomitant]
     Active Substance: OSIMERTINIB
  4. LOSARTAN [Concomitant]
     Active Substance: LOSARTAN

REACTIONS (4)
  - Lung neoplasm malignant [Unknown]
  - Brain cancer metastatic [Unknown]
  - Osteoporosis [Unknown]
  - Hypertension [Unknown]
